FAERS Safety Report 9456380 (Version 2)
Quarter: 2013Q4

REPORT INFORMATION
  Report Type: Spontaneous
  Country: US (occurrence: US)
  Receive Date: 20130813
  Receipt Date: 20131101
  Transmission Date: 20140711
  Serious: Yes (Other)
  Sender: FDA-Public Use
  Company Number: US-BAYER-2013-097436

PATIENT
  Age: 41 Year
  Sex: Female

DRUGS (1)
  1. MIRENA [Suspect]
     Indication: CONTRACEPTION
     Dosage: 20 MCG/24HR, CONT
     Route: 015
     Dates: start: 20060901, end: 20120321

REACTIONS (13)
  - Uterine perforation [None]
  - Infertility [None]
  - Injury [None]
  - Pain [None]
  - Vaginal haemorrhage [None]
  - Emotional distress [None]
  - Device difficult to use [None]
  - Device dislocation [None]
  - Internal injury [None]
  - Medical device discomfort [None]
  - Depression [None]
  - Anxiety [None]
  - Device misuse [None]
